FAERS Safety Report 13595026 (Version 2)
Quarter: 2017Q2

REPORT INFORMATION
  Report Type: Spontaneous
  Country: US (occurrence: US)
  Receive Date: 20170531
  Receipt Date: 20170607
  Transmission Date: 20170830
  Serious: Yes (Hospitalization, Other)
  Sender: FDA-Public Use
  Company Number: US-TORRENT-00002768

PATIENT
  Age: 71 Year
  Sex: Male

DRUGS (4)
  1. COLECALCIFEROL [Suspect]
     Active Substance: CHOLECALCIFEROL
  2. OLANZAPINE. [Suspect]
     Active Substance: OLANZAPINE
  3. ROSUVASTATIN. [Suspect]
     Active Substance: ROSUVASTATIN
  4. ACETYLSALICYLIC ACID [Suspect]
     Active Substance: ASPIRIN

REACTIONS (3)
  - Delirium [Recovering/Resolving]
  - Off label use [Unknown]
  - Blood creatine phosphokinase increased [Recovering/Resolving]
